FAERS Safety Report 9023996 (Version 2)
Quarter: 2014Q1

REPORT INFORMATION
  Report Type: Spontaneous
  Country: US (occurrence: US)
  Receive Date: 20130122
  Receipt Date: 20140203
  Transmission Date: 20141002
  Serious: No
  Sender: FDA-Public Use
  Company Number: US-009507513-1301USA005382

PATIENT
  Sex: Female

DRUGS (2)
  1. IMPLANON [Suspect]
     Dosage: 1 DF, UNK
     Route: 059
     Dates: start: 20120529, end: 20130108
  2. IMPLANON [Suspect]
     Dosage: 1 UNK, UNK
     Route: 059
     Dates: start: 20130108

REACTIONS (3)
  - Device breakage [Recovered/Resolved]
  - Device deployment issue [Recovered/Resolved]
  - No adverse event [Unknown]
